FAERS Safety Report 16983103 (Version 1)
Quarter: 2019Q4

REPORT INFORMATION
  Report Type: Spontaneous
  Country: CA (occurrence: CA)
  Receive Date: 20191101
  Receipt Date: 20191101
  Transmission Date: 20200122
  Serious: Yes (Other)
  Sender: FDA-Public Use
  Company Number: CA-TEVA-2019-CA-1129000

PATIENT
  Sex: Female

DRUGS (4)
  1. METONIA [Suspect]
     Active Substance: METOCLOPRAMIDE
     Indication: PRODUCT USED FOR UNKNOWN INDICATION
     Route: 065
  2. SOTALOL. [Suspect]
     Active Substance: SOTALOL
     Indication: PRODUCT USED FOR UNKNOWN INDICATION
     Route: 065
  3. FULVESTRANT INJECTION SINGLE USE PREFILLED SYRINGES [Suspect]
     Active Substance: FULVESTRANT
     Indication: PRODUCT USED FOR UNKNOWN INDICATION
     Route: 065
  4. IBRANCE [Concomitant]
     Active Substance: PALBOCICLIB

REACTIONS (8)
  - Panic reaction [Unknown]
  - Hypertension [Unknown]
  - Dyspnoea [Unknown]
  - Eructation [Unknown]
  - Fatigue [Unknown]
  - Epistaxis [Unknown]
  - Flatulence [Unknown]
  - Nausea [Unknown]
